FAERS Safety Report 23130224 (Version 6)
Quarter: 2024Q2

REPORT INFORMATION
  Report Type: Spontaneous
  Country: US (occurrence: US)
  Receive Date: 20231031
  Receipt Date: 20240620
  Transmission Date: 20240716
  Serious: No
  Sender: FDA-Public Use
  Company Number: US-BRISTOL-MYERS SQUIBB COMPANY-2023-155151

PATIENT
  Age: 61 Year
  Sex: Female

DRUGS (2)
  1. REVLIMID [Suspect]
     Active Substance: LENALIDOMIDE
     Indication: Follicular lymphoma
     Route: 048
  2. REVLIMID [Suspect]
     Active Substance: LENALIDOMIDE
     Dosage: 21D ON, 7D OFF
     Route: 048

REACTIONS (6)
  - Muscle spasms [Unknown]
  - Rash [Unknown]
  - Diarrhoea [Recovering/Resolving]
  - Cough [Unknown]
  - Constipation [Recovering/Resolving]
  - Fatigue [Unknown]
